FAERS Safety Report 5125666-2 (Version None)
Quarter: 2006Q4

REPORT INFORMATION
  Report Type: 
  Country: None (occurrence: None)
  Receive Date: 20061010
  Receipt Date: 20061010
  Transmission Date: 20070319
  Serious: Yes (Life-Threatening, Hospitalization)
  Sender: FDA-Public Use
  Company Number: None

PATIENT
  Age: 44 Year
  Sex: Female
  Weight: 95.709 kg

DRUGS (1)
  1. VIVELLE [Suspect]
     Indication: HOT FLUSH
     Dosage: 37.5   CHANGE TWICE A WEEK      TRANSDERMAL
     Route: 062
     Dates: start: 20010501, end: 20050121

REACTIONS (5)
  - GALLBLADDER OBSTRUCTION [None]
  - GASTROINTESTINAL DISORDER [None]
  - LIVER DISORDER [None]
  - PANCREATIC CARCINOMA [None]
  - PULMONARY EMBOLISM [None]
